FAERS Safety Report 6677397-5 (Version None)
Quarter: 2010Q2

REPORT INFORMATION
  Report Type: 
  Country: None (occurrence: None)
  Receive Date: 20100412
  Receipt Date: 20100112
  Transmission Date: 20101027
  Serious: No
  Sender: FDA-Public Use
  Company Number: US-ALEXION-A201000029

PATIENT
  Sex: Female

DRUGS (6)
  1. SOLIRIS [Suspect]
     Indication: PAROXYSMAL NOCTURNAL HAEMOGLOBINURIA
     Dosage: 600 MG, UNK
     Dates: start: 20070901
  2. SOLIRIS [Suspect]
     Dosage: 900 MG, UNK
  3. TAMOXIFEN CITRATE [Concomitant]
     Indication: BREAST CANCER
  4. ZYRTEC [Concomitant]
     Dosage: UNK
     Route: 048
  5. AMBIEN [Concomitant]
     Dosage: UNK
     Route: 048
  6. XANAX [Concomitant]
     Dosage: UNK
     Route: 048

REACTIONS (1)
  - TOOTH INFECTION [None]
